FAERS Safety Report 5902604-3 (Version None)
Quarter: 2008Q3

REPORT INFORMATION
  Report Type: 
  Country: None (occurrence: None)
  Receive Date: 20080926
  Receipt Date: 20080912
  Transmission Date: 20090109
  Serious: Yes (Hospitalization, Other)
  Sender: FDA-Public Use
  Company Number: FABR-1000423

PATIENT
  Age: 51 Year
  Sex: Male
  Weight: 85 kg

DRUGS (16)
  1. FABRAZYME [Suspect]
     Indication: FABRY'S DISEASE
     Dosage: 85 MG, INTRAVENOUS
     Route: 042
     Dates: start: 20080731
  2. BENZONATATE [Concomitant]
  3. BUMEX [Concomitant]
  4. CEFADROXIL [Concomitant]
  5. CLARITIN [Concomitant]
  6. DIGOXIN [Concomitant]
  7. DILANTIN (PHENYTOIN) [Concomitant]
  8. LYRICA [Concomitant]
  9. METOPROLOL SUCCINATE SR [Concomitant]
  10. MORPHINE SULFATE [Concomitant]
  11. WARFARIN SODIUM [Concomitant]
  12. MS CONTIN [Concomitant]
  13. MULTIVITAMIN [Concomitant]
  14. NEXIUM (ESOMEPRAZOLE SODIUM) [Concomitant]
  15. SLOW RELEASE IRON [Concomitant]
  16. ASCORBIC ACID [Concomitant]

REACTIONS (3)
  - BRAIN STEM INFARCTION [None]
  - DYSARTHRIA [None]
  - INFARCTION [None]
